FAERS Safety Report 25793104 (Version 1)
Quarter: 2025Q3

REPORT INFORMATION
  Report Type: Spontaneous
  Country: US (occurrence: US)
  Receive Date: 20250911
  Receipt Date: 20250911
  Transmission Date: 20251021
  Serious: Yes (Life-Threatening, Hospitalization, Disabling, Other)
  Sender: MERZ
  Company Number: None

PATIENT

DRUGS (5)
  1. XEOMIN [Suspect]
     Active Substance: INCOBOTULINUMTOXINA
     Indication: Skin wrinkling
  2. MAGNESIUM [Concomitant]
     Active Substance: MAGNESIUM
  3. COLLAGEN [Concomitant]
     Active Substance: COLLAGEN
  4. FISH OIL [Concomitant]
     Active Substance: FISH OIL
  5. ZINC [Concomitant]
     Active Substance: ZINC

REACTIONS (7)
  - Skin erosion [Unknown]
  - Impaired quality of life [Unknown]
  - Inflammation [Unknown]
  - Palpitations [Unknown]
  - Neuralgia [Unknown]
  - Botulism [Unknown]
  - Product label confusion [Unknown]

NARRATIVE: CASE EVENT DATE: 20230309
